FAERS Safety Report 21626309 (Version 3)
Quarter: 2023Q1

REPORT INFORMATION
  Report Type: Spontaneous
  Country: US (occurrence: None)
  Receive Date: 20221122
  Receipt Date: 20230110
  Transmission Date: 20230417
  Serious: Yes (Other)
  Sender: FDA-Public Use
  Company Number: US-ROCHE-3221780

PATIENT
  Age: 62 Year
  Sex: Male

DRUGS (10)
  1. XOLAIR [Suspect]
     Active Substance: OMALIZUMAB
     Indication: Swelling face
     Route: 065
  2. XOLAIR [Suspect]
     Active Substance: OMALIZUMAB
     Indication: Periorbital swelling
     Route: 065
     Dates: start: 20221207
  3. XOLAIR [Suspect]
     Active Substance: OMALIZUMAB
     Route: 065
     Dates: start: 20221102
  4. XOLAIR [Suspect]
     Active Substance: OMALIZUMAB
     Route: 065
     Dates: start: 20221005
  5. XOLAIR [Suspect]
     Active Substance: OMALIZUMAB
     Indication: Swelling face
     Route: 065
     Dates: start: 20230104
  6. XOLAIR [Suspect]
     Active Substance: OMALIZUMAB
     Indication: Periorbital swelling
  7. COREG [Concomitant]
     Active Substance: CARVEDILOL
  8. HYDRALAZINE [Concomitant]
     Active Substance: HYDRALAZINE HYDROCHLORIDE
  9. ZYRTEC [Concomitant]
     Active Substance: CETIRIZINE HYDROCHLORIDE
  10. PEPCID [Concomitant]
     Active Substance: FAMOTIDINE

REACTIONS (9)
  - Cardiac failure congestive [Unknown]
  - Swelling [Unknown]
  - Urticaria [Unknown]
  - Dyspnoea [Unknown]
  - Dry eye [Unknown]
  - Off label use [Unknown]
  - Eye swelling [Unknown]
  - Gingival bleeding [Unknown]
  - Ocular hyperaemia [Unknown]
